FAERS Safety Report 14250655 (Version 1)
Quarter: 2017Q4

REPORT INFORMATION
  Report Type: Spontaneous
  Country: US (occurrence: US)
  Receive Date: 20171205
  Receipt Date: 20171205
  Transmission Date: 20180321
  Serious: No
  Sender: FDA-Public Use
  Company Number: US-ENDO PHARMACEUTICALS INC-2017-004406

PATIENT
  Sex: Male

DRUGS (7)
  1. ATENOLOL. [Concomitant]
     Active Substance: ATENOLOL
     Indication: ATTENTION DEFICIT/HYPERACTIVITY DISORDER
  2. CITALOPRAM [Concomitant]
     Active Substance: CITALOPRAM HYDROBROMIDE
     Indication: DEPRESSION
  3. ALPRAZOLAM TABLETS 1 MG [Suspect]
     Active Substance: ALPRAZOLAM
     Indication: ANXIETY
     Dosage: 1 DF, TID
     Route: 048
  4. ALPRAZOLAM TABLETS 1 MG [Suspect]
     Active Substance: ALPRAZOLAM
     Indication: ATTENTION DEFICIT/HYPERACTIVITY DISORDER
     Dosage: 2 DF, DAILY SOME GOOD DAYS
     Route: 048
  5. ALPRAZOLAM TABLETS 1 MG [Suspect]
     Active Substance: ALPRAZOLAM
     Dosage: 4 DF, DAILY DURING BAD DAYS
     Route: 048
  6. MULTIVITAMINS                      /00116001/ [Concomitant]
     Active Substance: VITAMINS
     Indication: PRODUCT USED FOR UNKNOWN INDICATION
  7. GENERIC NORVASC [Concomitant]
     Indication: PRODUCT USED FOR UNKNOWN INDICATION

REACTIONS (2)
  - Drug screen negative [Not Recovered/Not Resolved]
  - Off label use [Unknown]

NARRATIVE: CASE EVENT DATE: 2017
